FAERS Safety Report 7302075-9 (Version None)
Quarter: 2011Q1

REPORT INFORMATION
  Report Type: 
  Country: None (occurrence: None)
  Receive Date: 20110218
  Receipt Date: 20110215
  Transmission Date: 20110831
  Serious: Yes (Death, Hospitalization)
  Sender: FDA-Public Use
  Company Number: FR-PFIZER INC-2011033322

PATIENT
  Age: 41 Year
  Sex: Male
  Weight: 113 kg

DRUGS (6)
  1. SOMATROPIN [Suspect]
     Indication: HYPOPITUITARISM
     Dosage: 0.3 MG, 1X/DAY
     Dates: start: 20080327
  2. LEVOTHYROX [Concomitant]
     Indication: PRIMARY HYPOTHYROIDISM
     Dosage: 175 UG, 1X/DAY
     Dates: start: 20080927
  3. GLUCOPHAGE [Concomitant]
     Indication: ANTIDIURETIC HORMONE ABNORMALITY
     Dosage: 2300 UNK, UNK
     Dates: start: 20090227
  4. ANDROTARDYL [Concomitant]
     Indication: HORMONE LEVEL ABNORMAL
     Dosage: 1 DF, EVERY 3 WEEKS
     Dates: start: 20080327
  5. HYDROCORTISONE [Concomitant]
     Indication: BLOOD CORTICOTROPHIN DECREASED
     Dosage: 20 MG, 1X/DAY
     Route: 048
     Dates: start: 20080327
  6. DESMOPRESSIN ACETATE [Concomitant]
     Indication: ANTIDIURETIC HORMONE ABNORMALITY
     Dosage: 0.4 MG, 1X/DAY
     Route: 048
     Dates: start: 20080327

REACTIONS (1)
  - DYSPNOEA [None]
